FAERS Safety Report 19780130 (Version 2)
Quarter: 2021Q3

REPORT INFORMATION
  Report Type: Spontaneous
  Country: US (occurrence: US)
  Receive Date: 20210902
  Receipt Date: 20210909
  Transmission Date: 20211014
  Serious: Yes (Other)
  Sender: FDA-Public Use
  Company Number: US-PFIZER INC-202101085639

PATIENT
  Age: 11 Year
  Sex: Male
  Weight: 59 kg

DRUGS (1)
  1. PALBOCICLIB [Suspect]
     Active Substance: PALBOCICLIB
     Indication: ALVEOLAR RHABDOMYOSARCOMA
     Dosage: 125 MG
     Route: 048
     Dates: start: 20210719

REACTIONS (2)
  - Off label use [Unknown]
  - Dermatitis bullous [Recovered/Resolved]

NARRATIVE: CASE EVENT DATE: 20210719
